FAERS Safety Report 7887143-5 (Version None)
Quarter: 2011Q4

REPORT INFORMATION
  Report Type: 
  Country: None (occurrence: None)
  Receive Date: 20111102
  Receipt Date: 20110715
  Transmission Date: 20120403
  Serious: No
  Sender: FDA-Public Use
  Company Number: US-AMGEN-USASP2011036101

PATIENT
  Age: 49 Year
  Sex: Female

DRUGS (12)
  1. ENBREL [Suspect]
     Indication: PRODUCT USED FOR UNKNOWN INDICATION
     Dosage: 50 MG, QWK
     Route: 058
  2. HYDROCHLOROTH [Concomitant]
  3. FOLIC ACID [Concomitant]
  4. LORATADINE [Concomitant]
  5. MULTIVITAMIN                       /00097801/ [Concomitant]
  6. IBUPROFEN [Concomitant]
  7. METHOTREXATE [Concomitant]
  8. PROVENTIL                          /00139501/ [Concomitant]
  9. TRAMADOL HCL [Concomitant]
  10. LISINOPRIL [Concomitant]
  11. QVAR 40 [Concomitant]
  12. VITAMIN D [Concomitant]

REACTIONS (1)
  - CHRONIC SINUSITIS [None]
